FAERS Safety Report 6469734-1 (Version None)
Quarter: 2009Q4

REPORT INFORMATION
  Report Type: 
  Country: None (occurrence: None)
  Receive Date: 20091203
  Receipt Date: 20080918
  Transmission Date: 20100525
  Serious: Yes (Hospitalization, Other)
  Sender: FDA-Public Use
  Company Number: IE-ELI_LILLY_AND_COMPANY-IE200711002478

PATIENT
  Sex: Female
  Weight: 55 kg

DRUGS (6)
  1. FORTEO [Suspect]
     Indication: OSTEOPOROSIS
     Dosage: 20 UG, UNKNOWN
     Route: 058
     Dates: start: 20071027, end: 20080601
  2. LEXAPRO [Concomitant]
     Dosage: UNK, UNKNOWN
     Route: 065
  3. SOLPADOL [Concomitant]
     Dosage: UNK, UNKNOWN
     Route: 065
  4. CALCICHEW D3 [Concomitant]
     Dosage: UNK, UNKNOWN
     Route: 065
  5. DONA [Concomitant]
     Dosage: UNK, UNKNOWN
     Route: 065
  6. ASPIRIN [Concomitant]
     Dosage: UNK, UNKNOWN
     Route: 065

REACTIONS (4)
  - DYSPNOEA [None]
  - NON-SMALL CELL LUNG CANCER [None]
  - PLEURAL EFFUSION [None]
  - PNEUMOTHORAX [None]
